FAERS Safety Report 6013807-4 (Version None)
Quarter: 2008Q4

REPORT INFORMATION
  Report Type: 
  Country: None (occurrence: None)
  Receive Date: 20081218
  Receipt Date: 20081218
  Transmission Date: 20090506
  Serious: Yes (Life-Threatening)
  Sender: FDA-Public Use
  Company Number: None

PATIENT
  Sex: Female

DRUGS (9)
  1. LITHIUM CARBONATE [Suspect]
     Indication: BIPOLAR DISORDER
     Dosage: 300 MG BID PO
     Route: 048
     Dates: start: 20080512, end: 20080604
  2. METFORMIN HCL [Concomitant]
  3. CLONAZEPAM [Concomitant]
  4. ENALAPRIL MALEATE [Concomitant]
  5. HYDROCHLOROTHIAZIDE [Concomitant]
  6. MULTIPLE VITAMIN [Concomitant]
  7. INSULIN GLARGINE [Concomitant]
  8. BENZTROPINE MESYLATE [Concomitant]
  9. RISPERIDONE [Concomitant]

REACTIONS (1)
  - BLOOD THYROID STIMULATING HORMONE INCREASED [None]
